FAERS Safety Report 13418064 (Version 2)
Quarter: 2017Q2

REPORT INFORMATION
  Report Type: Report from Study
  Country: US (occurrence: US)
  Receive Date: 20170406
  Receipt Date: 20170417
  Transmission Date: 20170830
  Serious: Yes (Hospitalization)
  Sender: FDA-Public Use
  Company Number: US-PFIZER INC-2017062259

PATIENT
  Age: 54 Year
  Sex: Male

DRUGS (2)
  1. SUTENT [Suspect]
     Active Substance: SUNITINIB MALATE
     Indication: RENAL CELL CARCINOMA
     Dosage: UNK, CYCLIC (2 WEEKS ON, 1 WEEK OFF)
  2. SUTENT [Suspect]
     Active Substance: SUNITINIB MALATE
     Dosage: 50 MG, CYCLIC (DAILY /2 WEEKS ON/1 WEEK OFF)
     Route: 048
     Dates: start: 20170207, end: 20170328

REACTIONS (10)
  - Constipation [Recovering/Resolving]
  - Red blood cell count decreased [Not Recovered/Not Resolved]
  - Fatigue [Not Recovered/Not Resolved]
  - Bone pain [Unknown]
  - Nausea [Unknown]
  - Respiratory distress [Unknown]
  - Vomiting [Unknown]
  - Gingivitis [Unknown]
  - Musculoskeletal chest pain [Unknown]
  - Dyspnoea [Unknown]
